FAERS Safety Report 8031666-5 (Version None)
Quarter: 2012Q1

REPORT INFORMATION
  Report Type: 
  Country: None (occurrence: None)
  Receive Date: 20120109
  Receipt Date: 20120105
  Transmission Date: 20120608
  Serious: Yes (Death, Disabling, Other)
  Sender: FDA-Public Use
  Company Number: US-CELGENEUS-163-21880-11110407

PATIENT
  Sex: Female

DRUGS (1)
  1. REVLIMID [Suspect]
     Indication: MYELODYSPLASTIC SYNDROME
     Dosage: 10 MILLIGRAM
     Route: 048
     Dates: start: 20110603, end: 20110811

REACTIONS (3)
  - PANCYTOPENIA [None]
  - DEATH [None]
  - ASTHENIA [None]
